FAERS Safety Report 10035974 (Version 1)
Quarter: 2014Q1

REPORT INFORMATION
  Report Type: Report from Study
  Country: FR (occurrence: FR)
  Receive Date: 20140325
  Receipt Date: 20140325
  Transmission Date: 20141002
  Serious: Yes (Death, Other)
  Sender: FDA-Public Use
  Company Number: FR-TEVA-470295USA

PATIENT
  Age: 65 Year
  Sex: Male
  Weight: 62 kg

DRUGS (2)
  1. BENDAMUSTINE [Suspect]
     Indication: PLASMA CELL MYELOMA
     Dosage: UNKNOWN/D
     Route: 042
     Dates: start: 20130422
  2. VELCADE [Suspect]
     Indication: PLASMA CELL MYELOMA
     Dosage: UNKNOWN/D
     Route: 042
     Dates: start: 20100628, end: 20101011

REACTIONS (2)
  - Respiratory distress [Fatal]
  - Disease progression [Unknown]
